FAERS Safety Report 8560816-7 (Version None)
Quarter: 2012Q3

REPORT INFORMATION
  Report Type: 
  Country: None (occurrence: None)
  Receive Date: 20120727
  Receipt Date: 20120727
  Transmission Date: 20120928
  Serious: Yes (Hospitalization)
  Sender: FDA-Public Use
  Company Number: None

PATIENT
  Age: 28 Year
  Sex: Female
  Weight: 56.2 kg

DRUGS (3)
  1. KEPPRA [Concomitant]
  2. DILANTIN [Suspect]
     Indication: CONVULSION
     Dosage: 150MG BID, PO
     Route: 048
  3. TOPAMAX [Concomitant]

REACTIONS (3)
  - BALANCE DISORDER [None]
  - ANTICONVULSANT DRUG LEVEL INCREASED [None]
  - TOXICITY TO VARIOUS AGENTS [None]
